FAERS Safety Report 8003117-8 (Version None)
Quarter: 2011Q4

REPORT INFORMATION
  Report Type: 
  Country: None (occurrence: None)
  Receive Date: 20111222
  Receipt Date: 20111213
  Transmission Date: 20120403
  Serious: Yes (Other)
  Sender: FDA-Public Use
  Company Number: PHHY2011BR110026

PATIENT
  Sex: Female

DRUGS (3)
  1. DIOVAN [Suspect]
     Indication: HYPERTENSION
     Dosage: 0.5 DF (160), DAILY
  2. DIOVAN [Suspect]
     Dosage: 1 DF (80 MG), DAILY
     Dates: start: 20111212
  3. TENADREN [Suspect]
     Indication: HYPERTENSION
     Dosage: 1 DF (40/25 MG), DAILY

REACTIONS (5)
  - HEPATIC STEATOSIS [None]
  - WRONG TECHNIQUE IN DRUG USAGE PROCESS [None]
  - DYSGEUSIA [None]
  - NAUSEA [None]
  - THROMBOSIS [None]
